FAERS Safety Report 8185640-9 (Version None)
Quarter: 2012Q1

REPORT INFORMATION
  Report Type: 
  Country: None (occurrence: None)
  Receive Date: 20120305
  Receipt Date: 20120301
  Transmission Date: 20120608
  Serious: Yes (Other)
  Sender: FDA-Public Use
  Company Number: GXKR2007GB01762

PATIENT
  Age: 68 Year
  Sex: Male
  Weight: 78 kg

DRUGS (11)
  1. PERINDOPRIL ERBUMINE [Suspect]
     Dosage: 2 MG, QD
     Route: 065
  2. AMIODARONE HCL [Suspect]
     Dosage: 200 MG, QD
     Route: 065
  3. FUROSEMIDE [Suspect]
     Dosage: 80 MG, BID
     Route: 065
  4. LANSOPRAZOLE [Suspect]
     Dosage: 30 MG, QD
     Route: 065
  5. WARFARIN SODIUM [Concomitant]
  6. EZETIMIBE [Suspect]
     Dosage: 10 MG, QD
     Route: 048
  7. ACETYLSALICYLIC ACID SRT [Suspect]
     Dosage: 75 MG, QD
     Route: 065
  8. BISOPROLOL FUMARATE [Suspect]
     Dosage: 7.5 MG, QD
     Route: 065
  9. DIGOXIN [Suspect]
     Dosage: 0.125 MG, QD
     Route: 065
  10. FUROSEMIDE [Suspect]
     Dosage: 120 MG, BID
     Route: 065
  11. ACIPIMOX [Suspect]
     Dosage: 250 MG, BID
     Route: 065

REACTIONS (14)
  - VENTRICULAR TACHYCARDIA [None]
  - FEELING ABNORMAL [None]
  - FATIGUE [None]
  - CARDIAC MURMUR [None]
  - DISSOCIATION [None]
  - OEDEMA PERIPHERAL [None]
  - DYSPNOEA [None]
  - ATRIAL FIBRILLATION [None]
  - DIZZINESS [None]
  - PARAESTHESIA [None]
  - DYSPNOEA EXERTIONAL [None]
  - LEFT VENTRICULAR DYSFUNCTION [None]
  - VENOUS PRESSURE JUGULAR INCREASED [None]
  - DRUG INEFFECTIVE [None]
